FAERS Safety Report 12957959 (Version 1)
Quarter: 2016Q4

REPORT INFORMATION
  Report Type: Spontaneous
  Country: US (occurrence: US)
  Receive Date: 20161119
  Receipt Date: 20161119
  Transmission Date: 20170207
  Serious: No
  Sender: FDA-Public Use
  Company Number: US-009507513-1611USA003552

PATIENT
  Sex: Female

DRUGS (1)
  1. BELSOMRA [Suspect]
     Active Substance: SUVOREXANT
     Indication: INSOMNIA
     Dosage: SHE HAD TAKEN A TOTAL OF FIVE PILLS BUT THE FREQUENCY WAS NOT SPECIFIED
     Route: 048

REACTIONS (3)
  - Oliguria [Unknown]
  - Bladder dysfunction [Unknown]
  - Dysuria [Unknown]
